FAERS Safety Report 23580826 (Version 2)
Quarter: 2024Q1

REPORT INFORMATION
  Report Type: Spontaneous
  Country: US (occurrence: US)
  Receive Date: 20240229
  Receipt Date: 20240304
  Transmission Date: 20240410
  Serious: Yes (Other)
  Sender: FDA-Public Use
  Company Number: US-ELI_LILLY_AND_COMPANY-US202310008689

PATIENT
  Age: 64 Year
  Sex: Male

DRUGS (7)
  1. METOPROLOL SUCCINATE [Interacting]
     Active Substance: METOPROLOL SUCCINATE
     Dosage: 12.5 MG, 1X/DAY
  2. TORSEMIDE [Interacting]
     Active Substance: TORSEMIDE
     Dosage: 50 MG, 2X/DAY(FREQ:12 H;)
  3. TORSEMIDE [Interacting]
     Active Substance: TORSEMIDE
     Dosage: 50 MG, DAILY
  4. TIRZEPATIDE [Interacting]
     Active Substance: TIRZEPATIDE
     Indication: Weight decreased
     Dosage: 10 MG, WEEKLY
  5. TIRZEPATIDE [Interacting]
     Active Substance: TIRZEPATIDE
     Dosage: 12.5 MG, WEEKLY(INCREASED)
  6. SACUBITRIL\VALSARTAN [Interacting]
     Active Substance: SACUBITRIL\VALSARTAN
     Dosage: FREQ:12 H;49/51 MG TWICE DAILY
  7. SACUBITRIL\VALSARTAN [Interacting]
     Active Substance: SACUBITRIL\VALSARTAN
     Dosage: 24/26 MG TWICE DAILY

REACTIONS (5)
  - Acute kidney injury [Recovered/Resolved]
  - Hypotension [Recovered/Resolved]
  - Sinus tachycardia [Unknown]
  - Blood potassium increased [Unknown]
  - Drug interaction [Recovered/Resolved]
